FAERS Safety Report 16783034 (Version 2)
Quarter: 2019Q3

REPORT INFORMATION
  Report Type: Report from Study
  Country: US (occurrence: US)
  Receive Date: 20190906
  Receipt Date: 20190924
  Transmission Date: 20191005
  Serious: Yes (Hospitalization)
  Sender: FDA-Public Use
  Company Number: US-TAKEDA-2019TUS051034

PATIENT
  Sex: Female
  Weight: 58.99 kg

DRUGS (1)
  1. PONATINIB [Suspect]
     Active Substance: PONATINIB
     Indication: CHRONIC MYELOID LEUKAEMIA
     Dosage: 30 MILLIGRAM, QD
     Route: 048
     Dates: start: 20190820

REACTIONS (4)
  - Dyspnoea [Recovering/Resolving]
  - Platelet count increased [Recovering/Resolving]
  - Blood potassium increased [Recovering/Resolving]
  - Clostridium difficile colitis [Unknown]
